FAERS Safety Report 4570344-1 (Version None)
Quarter: 2005Q1

REPORT INFORMATION
  Report Type: 
  Country: None (occurrence: None)
  Receive Date: 20050204
  Receipt Date: 20050112
  Transmission Date: 20050727
  Serious: Yes (Congenital Anomaly)
  Sender: FDA-Public Use
  Company Number: GB-ROCHE-393000

PATIENT
  Sex: Female

DRUGS (1)
  1. CELLCEPT [Suspect]
     Indication: DRUG USE FOR UNKNOWN INDICATION

REACTIONS (4)
  - ANOMALY OF EXTERNAL EAR CONGENITAL [None]
  - ANOTIA [None]
  - DRUG EXPOSURE DURING PREGNANCY [None]
  - EXTERNAL EAR DISORDER [None]
